FAERS Safety Report 20009533 (Version 2)
Quarter: 2021Q4

REPORT INFORMATION
  Report Type: Spontaneous
  Country: US (occurrence: US)
  Receive Date: 20211028
  Receipt Date: 20211102
  Transmission Date: 20220304
  Serious: Yes (Hospitalization, Other)
  Sender: FDA-Public Use
  Company Number: US-TEVA-2021-US-1969547

PATIENT
  Age: 28 Year
  Sex: Female

DRUGS (8)
  1. METHYLPREDNISOLONE [Suspect]
     Active Substance: METHYLPREDNISOLONE
     Indication: Immunosuppressant drug therapy
     Dosage: 2 MG/KG DAILY;
     Route: 042
     Dates: start: 20160103
  2. IPILIMUMAB [Suspect]
     Active Substance: IPILIMUMAB
     Indication: Metastatic malignant melanoma
     Dosage: EVERY 3 WEEKS
     Route: 042
     Dates: start: 20151201, end: 20151222
  3. NIVOLUMAB [Suspect]
     Active Substance: NIVOLUMAB
     Indication: Metastatic malignant melanoma
     Dosage: EVERY 3WEEKS
     Route: 042
     Dates: start: 20151201, end: 20151222
  4. TEMOZOLOMIDE [Suspect]
     Active Substance: TEMOZOLOMIDE
     Indication: Metastatic malignant melanoma
     Route: 065
  5. IMMUNE GLOBULIN [Concomitant]
     Indication: Acute motor axonal neuropathy
     Dosage: 0.4 G/KG
     Route: 042
  6. IMMUNE GLOBULIN [Concomitant]
     Dosage: 0.4 G/KG REPEAT CYCLE OF AT 15D AND 77D
     Route: 042
  7. DABRAFENIB [Concomitant]
     Active Substance: DABRAFENIB
     Indication: Metastatic malignant melanoma
     Dosage: 300 MILLIGRAM DAILY;
     Route: 048
  8. TRAMETINIB [Concomitant]
     Active Substance: TRAMETINIB
     Indication: Metastatic malignant melanoma
     Dosage: 2 MILLIGRAM DAILY;
     Route: 048

REACTIONS (3)
  - Acute motor axonal neuropathy [Unknown]
  - Myopathy [Unknown]
  - Drug ineffective [Unknown]
